FAERS Safety Report 21223202 (Version 2)
Quarter: 2022Q3

REPORT INFORMATION
  Report Type: Spontaneous
  Country: CO (occurrence: CO)
  Receive Date: 20220817
  Receipt Date: 20220909
  Transmission Date: 20221026
  Serious: Yes (Hospitalization)
  Sender: FDA-Public Use
  Company Number: CO-RECORDATI RARE DISEASE INC.-2022003827

PATIENT
  Age: 47 Year
  Sex: Female
  Weight: 52 kg

DRUGS (3)
  1. PANHEMATIN [Suspect]
     Active Substance: HEMIN
     Indication: Porphyria acute
     Dosage: 200 MILLIGRAM, QD
     Route: 042
     Dates: start: 20200619
  2. PANHEMATIN [Suspect]
     Active Substance: HEMIN
     Dosage: 200 MILLIGRAM, QD
     Route: 042
     Dates: start: 20220719, end: 20220722
  3. PREGABALIN [Concomitant]
     Active Substance: PREGABALIN
     Indication: Pain
     Dosage: 150 MILLIGRAM, Q8H
     Route: 048
     Dates: start: 20200601

REACTIONS (5)
  - Administration site extravasation [Recovered/Resolved]
  - Chest pain [Recovered/Resolved]
  - Pain in extremity [Recovered/Resolved]
  - Haematoma [Recovered/Resolved]
  - Skin hyperpigmentation [Recovered/Resolved]

NARRATIVE: CASE EVENT DATE: 20220720
